FAERS Safety Report 7582490-9 (Version None)
Quarter: 2011Q2

REPORT INFORMATION
  Report Type: 
  Country: None (occurrence: None)
  Receive Date: 20110630
  Receipt Date: 20110624
  Transmission Date: 20111010
  Serious: No
  Sender: FDA-Public Use
  Company Number: US-PFIZER INC-2011141312

PATIENT
  Sex: Female

DRUGS (2)
  1. LATANOPROST [Suspect]
     Indication: GLAUCOMA
     Dosage: UNK
     Dates: start: 20110101
  2. XALATAN [Suspect]
     Indication: GLAUCOMA
     Dosage: 1 DROP IN EACH EYE
     Route: 047

REACTIONS (1)
  - DRUG INEFFECTIVE [None]
